FAERS Safety Report 8674089 (Version 4)
Quarter: 2014Q3

REPORT INFORMATION
  Report Type: Spontaneous
  Country: US (occurrence: US)
  Receive Date: 20120719
  Receipt Date: 20140827
  Transmission Date: 20150326
  Serious: Yes (Hospitalization, Other)
  Sender: FDA-Public Use
  Company Number: US-009507513-1207USA002370

PATIENT
  Sex: Female
  Weight: 67.12 kg

DRUGS (2)
  1. NUVARING [Suspect]
     Active Substance: ETHINYL ESTRADIOL\ETONOGESTREL
     Indication: CONTRACEPTION
     Dosage: 0.120 MG/0.015 MG PER DAY, ONCE MONTHLY
     Route: 067
     Dates: start: 20090128, end: 200902
  2. NUVARING [Suspect]
     Active Substance: ETHINYL ESTRADIOL\ETONOGESTREL
     Indication: MENSTRUATION IRREGULAR
     Dosage: 0.120 MG/0.015 MG PER DAY, ONCE MONTHLY
     Route: 067
     Dates: start: 20090215, end: 20100715

REACTIONS (17)
  - Pulmonary embolism [Unknown]
  - Menorrhagia [Unknown]
  - Musculoskeletal discomfort [Unknown]
  - Cardiac ablation [Unknown]
  - No therapeutic response [Unknown]
  - Tachycardia [Unknown]
  - Drug ineffective [Unknown]
  - Drug dose omission [Recovered/Resolved]
  - Atrial fibrillation [Unknown]
  - Maternal exposure before pregnancy [Recovered/Resolved]
  - Cardioversion [Recovered/Resolved]
  - Blood potassium decreased [Recovered/Resolved]
  - Device expulsion [Unknown]
  - Dysmenorrhoea [Unknown]
  - Off label use [Recovered/Resolved]
  - Anxiety [Unknown]
  - Puncture site pain [Unknown]

NARRATIVE: CASE EVENT DATE: 20090128
